FAERS Safety Report 8150620-6 (Version None)
Quarter: 2012Q1

REPORT INFORMATION
  Report Type: 
  Country: None (occurrence: None)
  Receive Date: 20120220
  Receipt Date: 20120210
  Transmission Date: 20120608
  Serious: Yes (Hospitalization)
  Sender: FDA-Public Use
  Company Number: PHHY2012VE011754

PATIENT
  Age: 76 Year
  Sex: Female

DRUGS (1)
  1. ONBREZ [Suspect]
     Dosage: 150 UG, UNK

REACTIONS (2)
  - CORONARY ARTERY DISEASE [None]
  - ELECTROCARDIOGRAM ST SEGMENT ELEVATION [None]
